FAERS Safety Report 10059431 (Version 1)
Quarter: 2014Q2

REPORT INFORMATION
  Report Type: Spontaneous
  Country: BR (occurrence: BR)
  Receive Date: 20140404
  Receipt Date: 20140404
  Transmission Date: 20141212
  Serious: Yes (Hospitalization)
  Sender: FDA-Public Use
  Company Number: BR-009507513-1403BRA012241

PATIENT
  Age: 24 Year
  Sex: Female
  Weight: 60 kg

DRUGS (2)
  1. MERCILON [Suspect]
     Indication: CONTRACEPTION
     Dosage: 1 DF, QD
     Route: 048
     Dates: end: 2009
  2. MERCILON [Suspect]
     Dosage: 1 DF, QD
     Route: 048
     Dates: start: 2011

REACTIONS (4)
  - Myomectomy [Recovered/Resolved]
  - Ovarian cystectomy [Recovered/Resolved]
  - Uterine leiomyoma [Recovered/Resolved]
  - Drug administration error [Unknown]
